FAERS Safety Report 5440774-4 (Version None)
Quarter: 2007Q3

REPORT INFORMATION
  Report Type: 
  Country: None (occurrence: None)
  Receive Date: 20070831
  Receipt Date: 20070820
  Transmission Date: 20080115
  Serious: Yes (Hospitalization)
  Sender: FDA-Public Use
  Company Number: PHBS2001FI00563

PATIENT
  Age: 52 Year
  Sex: Male

DRUGS (13)
  1. SANDIMMUNE [Suspect]
     Indication: GLOMERULONEPHRITIS
     Dosage: 200 MG/D
     Route: 048
     Dates: start: 20001101, end: 20001113
  2. SANDIMMUNE [Suspect]
     Dosage: 150 MG/D
     Route: 048
     Dates: start: 20001113, end: 20001124
  3. SANDIMMUNE [Suspect]
     Dosage: 100  MG/D
     Route: 048
     Dates: start: 20001124, end: 20001209
  4. ZOCOR [Suspect]
     Indication: HYPERCHOLESTEROLAEMIA
     Dosage: 80 MG/D
     Route: 048
     Dates: start: 20001101, end: 20001209
  5. ZOCOR [Suspect]
     Indication: PROTEINURIA
     Dosage: 80 MG/D
     Route: 048
     Dates: start: 20001101, end: 20001209
  6. MEDROL [Concomitant]
     Dosage: 8 MG EVERY OTHER DAY
  7. COZAAR [Interacting]
     Dosage: 50 MG/D
  8. LANSOPRAZOLE [Concomitant]
     Dosage: 30 MG/D
  9. FOSAMAX [Interacting]
     Dosage: 10 MG/D
  10. CALCICHEW [Interacting]
     Dosage: 1 G/D
  11. CITALOPRAM HYDROBROMIDE [Interacting]
     Dosage: 20 MG/D
  12. MAREVAN [Concomitant]
  13. MYCOPHENOLATE MOFETIL [Concomitant]
     Indication: GLOMERULONEPHRITIS
     Dates: start: 19991201, end: 19991201

REACTIONS (5)
  - DRUG INTERACTION [None]
  - MUSCULAR WEAKNESS [None]
  - MYALGIA [None]
  - RHABDOMYOLYSIS [None]
  - TREMOR [None]
